FAERS Safety Report 8473772-7 (Version None)
Quarter: 2012Q2

REPORT INFORMATION
  Report Type: 
  Country: None (occurrence: None)
  Receive Date: 20120628
  Receipt Date: 20111205
  Transmission Date: 20120825
  Serious: Yes (Death)
  Sender: FDA-Public Use
  Company Number: US-MYLANLABS-2011S1022804

PATIENT
  Age: 76 Year
  Sex: Female

DRUGS (6)
  1. ZANTAC [Concomitant]
  2. CLOZAPINE [Suspect]
     Indication: SCHIZOPHRENIA
     Route: 048
  3. ALDACTONE [Concomitant]
  4. LIPITOR [Concomitant]
  5. NAPROXEN [Concomitant]
  6. ASPIRIN [Concomitant]

REACTIONS (2)
  - LEUKOCYTOSIS [None]
  - DEATH [None]
